FAERS Safety Report 6566865-2 (Version None)
Quarter: 2010Q1

REPORT INFORMATION
  Report Type: 
  Country: None (occurrence: None)
  Receive Date: 20100202
  Receipt Date: 20100122
  Transmission Date: 20100710
  Serious: Yes (Hospitalization)
  Sender: FDA-Public Use
  Company Number: B0629146A

PATIENT
  Age: 30 Year
  Sex: Female

DRUGS (7)
  1. AMOXICILLIN AND CLAVULANATE POTASSIUM [Suspect]
     Indication: TOOTHACHE
     Route: 065
  2. PREDNISONE [Concomitant]
     Dosage: 20MG PER DAY
  3. AZATHIOPRINE [Concomitant]
     Dosage: 50MG TWICE PER DAY
  4. CAPTOPRIL [Concomitant]
     Dosage: 50MG TWICE PER DAY
  5. SIMVASTATIN [Concomitant]
     Dosage: 20MG PER DAY
  6. FUROSEMIDE [Concomitant]
     Dosage: 20MG PER DAY
  7. FOLIC ACID [Concomitant]
     Dosage: 5MG PER DAY

REACTIONS (29)
  - ALANINE AMINOTRANSFERASE INCREASED [None]
  - ASPARTATE AMINOTRANSFERASE INCREASED [None]
  - BLOOD CREATINE PHOSPHOKINASE INCREASED [None]
  - BLOOD CREATININE INCREASED [None]
  - BODY TEMPERATURE INCREASED [None]
  - C-REACTIVE PROTEIN INCREASED [None]
  - CHILLS [None]
  - CONJUNCTIVAL HAEMORRHAGE [None]
  - DIARRHOEA [None]
  - EPIDERMOLYSIS [None]
  - GLOMERULONEPHRITIS [None]
  - HAEMATURIA [None]
  - HYPOALBUMINAEMIA [None]
  - LUNG INFILTRATION [None]
  - LYMPHOCYTE COUNT DECREASED [None]
  - MALAISE [None]
  - MYALGIA [None]
  - ODYNOPHAGIA [None]
  - PLATELET COUNT DECREASED [None]
  - PRODUCTIVE COUGH [None]
  - PROTEINURIA [None]
  - PURPURA [None]
  - PYREXIA [None]
  - RASH MACULO-PAPULAR [None]
  - RENAL FAILURE ACUTE [None]
  - RHABDOMYOLYSIS [None]
  - SEPSIS [None]
  - SKIN LESION [None]
  - TYPE IV HYPERSENSITIVITY REACTION [None]
